FAERS Safety Report 5418025-6 (Version None)
Quarter: 2007Q3

REPORT INFORMATION
  Report Type: 
  Country: None (occurrence: None)
  Receive Date: 20070817
  Receipt Date: 20070129
  Transmission Date: 20080115
  Serious: No
  Sender: FDA-Public Use
  Company Number: A0634926A

PATIENT
  Age: 54 Year
  Sex: Female

DRUGS (3)
  1. BEXXAR [Suspect]
     Indication: NON-HODGKIN'S LYMPHOMA
     Route: 042
     Dates: start: 20070105
  2. SSKI [Concomitant]
  3. BENADRYL [Concomitant]

REACTIONS (1)
  - PALPITATIONS [None]
